FAERS Safety Report 15789897 (Version 2)
Quarter: 2019Q1

REPORT INFORMATION
  Report Type: Spontaneous
  Country: US (occurrence: US)
  Receive Date: 20190104
  Receipt Date: 20190227
  Transmission Date: 20190417
  Serious: No
  Sender: FDA-Public Use
  Company Number: US-ASTRAZENECA-2018SF60558

PATIENT
  Sex: Male
  Weight: 72.6 kg

DRUGS (1)
  1. BEVESPI AEROSPHERE [Suspect]
     Active Substance: FORMOTEROL FUMARATE\GLYCOPYRROLATE
     Indication: CHRONIC OBSTRUCTIVE PULMONARY DISEASE
     Dosage: 9/4.8 MCG TWO RESPIRATORY INHALATIONS TWICE A DAY, EVERY 12 HOURS
     Route: 055
     Dates: start: 2018

REACTIONS (5)
  - Visual acuity reduced [Unknown]
  - Wrong technique in device usage process [Unknown]
  - Intentional device misuse [Unknown]
  - Dyspnoea [Unknown]
  - Device malfunction [Unknown]
